FAERS Safety Report 4754299-2 (Version None)
Quarter: 2005Q3

REPORT INFORMATION
  Report Type: 
  Country: None (occurrence: None)
  Receive Date: 20050825
  Receipt Date: 20050825
  Transmission Date: 20060218
  Serious: Yes (Hospitalization)
  Sender: FDA-Public Use
  Company Number: None

PATIENT
  Age: 46 Year
  Sex: Female

DRUGS (5)
  1. CAMPATH [Suspect]
     Indication: PERIPHERAL T-CELL LYMPHOMA UNSPECIFIED
     Dosage: Q 3 WEEKS
     Dates: start: 20040824
  2. CYTOXAN [Suspect]
     Dosage: Q 3 WEEKS
     Dates: start: 20040201
  3. DOXORUBICIN HCL [Suspect]
  4. VINCRISTINE [Suspect]
  5. PREDNISONE [Suspect]

REACTIONS (6)
  - ASTHENIA [None]
  - DIZZINESS POSTURAL [None]
  - HEART RATE INCREASED [None]
  - SINUS TACHYCARDIA [None]
  - SUPRAVENTRICULAR EXTRASYSTOLES [None]
  - VENTRICULAR EXTRASYSTOLES [None]
